FAERS Safety Report 7179040 (Version 3)
Quarter: 2012Q4

REPORT INFORMATION
  Report Type: 
  Country: US (occurrence: US)
  Receive Date: 20091117
  Receipt Date: 20120918
  Transmission Date: 20130627
  Serious: Yes (Hospitalization)
  Sender: FDA-Public Use
  Company Number: US-ALEXION-A200900964

PATIENT
  Age: 19 Year
  Sex: Female
  Weight: 55.7 kg

DRUGS (7)
  1. SOLIRIS [Suspect]
     Indication: PAROXYSMAL NOCTURNAL HAEMOGLOBINURIA
     Dosage: 600 mg, qw
     Route: 042
     Dates: start: 20090929, end: 20091023
  2. MIRALAX [Concomitant]
     Indication: CONSTIPATION
     Dosage: 17 g, prn
     Route: 048
  3. ZANTAC [Concomitant]
     Indication: GASTROOESOPHAGEAL REFLUX DISEASE
     Dosage: 150 mg, bid
     Route: 048
  4. ORAL CONTRACEPTIVE NOS [Concomitant]
     Indication: CONTRACEPTION
     Dosage: 1 DF, qd
     Route: 048
  5. NORCO [Concomitant]
     Indication: ABDOMINAL PAIN
     Dosage: 10 mg hydrocodone/325 mg acetamenophen Q4-6H PRN
     Route: 048
  6. EXJADE [Concomitant]
     Indication: IRON OVERLOAD
     Dosage: 1250 mg, qd
     Route: 048
  7. NYSTATIN [Concomitant]
     Indication: CANDIDIASIS
     Dosage: Swish and swallow
     Route: 048

REACTIONS (4)
  - Bacteraemia [Recovered/Resolved]
  - Iron overload [Recovered/Resolved]
  - Electrolyte imbalance [Recovered/Resolved]
  - Urinary tract infection [Recovered/Resolved]
